FAERS Safety Report 4464770-9 (Version None)
Quarter: 2004Q3

REPORT INFORMATION
  Report Type: 
  Country: None (occurrence: None)
  Receive Date: 20040928
  Receipt Date: 20040928
  Transmission Date: 20050211
  Serious: Yes (Hospitalization)
  Sender: FDA-Public Use
  Company Number: None

PATIENT
  Sex: Male

DRUGS (8)
  1. GEMCITABINE [Suspect]
     Indication: NON-SMALL CELL LUNG CANCER
     Dosage: 2000 ONCE INTRAVENOUS MG
     Route: 042
     Dates: start: 20040322, end: 20040322
  2. EPOGEN [Concomitant]
  3. LISINOPRIL [Concomitant]
  4. HYDROCHLOROTHIAZIDE [Concomitant]
  5. ATENOLOL [Concomitant]
  6. ENSURE [Concomitant]
  7. COMBIVENT [Concomitant]
  8. SIMVASTATIN [Concomitant]

REACTIONS (3)
  - ASTHENIA [None]
  - INCONTINENCE [None]
  - PYREXIA [None]
